FAERS Safety Report 11070397 (Version 2)
Quarter: 2015Q2

REPORT INFORMATION
  Report Type: Report from Study
  Country: AU (occurrence: AU)
  Receive Date: 20150427
  Receipt Date: 20150511
  Transmission Date: 20150821
  Serious: Yes (Hospitalization, Other)
  Sender: FDA-Public Use
  Company Number: PHHY2015AU012296

PATIENT
  Age: 46 Year
  Sex: Male

DRUGS (4)
  1. SERTRALINE [Concomitant]
     Active Substance: SERTRALINE HYDROCHLORIDE
     Indication: DEPRESSION
     Dosage: 50 MG, QD (IN THE MORNING)
     Route: 048
  2. CLOZARIL [Suspect]
     Active Substance: CLOZAPINE
     Indication: SCHIZOPHRENIA
     Route: 048
     Dates: start: 20010118
  3. DOCUSATE [Concomitant]
     Active Substance: DOCUSATE
     Indication: CONSTIPATION
     Dosage: 100 MG, QD
     Route: 048
  4. CLOZARIL [Suspect]
     Active Substance: CLOZAPINE
     Dosage: 150 MG, QD (AT NIGHT)
     Route: 048

REACTIONS (7)
  - Sinus tachycardia [Recovering/Resolving]
  - Catatonia [Unknown]
  - Antipsychotic drug level below therapeutic [Unknown]
  - Malaise [Unknown]
  - Pneumonia [Recovered/Resolved]
  - Confusional state [Recovered/Resolved]
  - Ejection fraction decreased [Unknown]

NARRATIVE: CASE EVENT DATE: 20150124
